FAERS Safety Report 5330538-4 (Version None)
Quarter: 2007Q2

REPORT INFORMATION
  Report Type: 
  Country: None (occurrence: None)
  Receive Date: 20070516
  Receipt Date: 20070503
  Transmission Date: 20071010
  Serious: Yes (Other)
  Sender: FDA-Public Use
  Company Number: 155967USA

PATIENT
  Sex: Female

DRUGS (1)
  1. PIMOZIDE [Suspect]
     Indication: AGITATION
     Dosage: 1 MG ( 1MG, 1 IN 1 D)
     Route: 048
     Dates: start: 20060101

REACTIONS (5)
  - CONDITION AGGRAVATED [None]
  - MENTAL DISORDER [None]
  - OVERDOSE [None]
  - SOMNOLENCE [None]
  - SUICIDE ATTEMPT [None]
